FAERS Safety Report 18119742 (Version 2)
Quarter: 2025Q2

REPORT INFORMATION
  Report Type: Spontaneous
  Country: US (occurrence: US)
  Receive Date: 20200806
  Receipt Date: 20250605
  Transmission Date: 20250717
  Serious: Yes (Disabling, Other)
  Sender: PURDUE
  Company Number: US-PURDUE-USA-2020-0159853

PATIENT
  Age: 46 Year
  Sex: Female

DRUGS (1)
  1. OXYCONTIN [Suspect]
     Active Substance: OXYCODONE HYDROCHLORIDE
     Indication: Back pain
     Route: 048
     Dates: start: 1999

REACTIONS (3)
  - Drug dependence [Unknown]
  - Imprisonment [Not Recovered/Not Resolved]
  - Impaired quality of life [Unknown]

NARRATIVE: CASE EVENT DATE: 20091206
